FAERS Safety Report 14602263 (Version 2)
Quarter: 2018Q2

REPORT INFORMATION
  Report Type: Spontaneous
  Country: DE (occurrence: DE)
  Receive Date: 20180306
  Receipt Date: 20180410
  Transmission Date: 20180711
  Serious: Yes (Death, Hospitalization, Other)
  Sender: FDA-Public Use
  Company Number: DE-WEST-WARD PHARMACEUTICALS CORP.-DE-H14001-18-01568

PATIENT
  Age: 85 Year
  Sex: Male
  Weight: 72 kg

DRUGS (3)
  1. AVASTIN [Suspect]
     Active Substance: BEVACIZUMAB
     Indication: COLORECTAL CANCER METASTATIC
     Dosage: ()
     Route: 065
     Dates: start: 20180122, end: 20180122
  2. LOPERAMID [Suspect]
     Active Substance: LOPERAMIDE
     Indication: PRODUCT USED FOR UNKNOWN INDICATION
     Dosage: ()
     Route: 065
     Dates: start: 2017, end: 2018
  3. CAPECITABINE. [Suspect]
     Active Substance: CAPECITABINE
     Indication: COLORECTAL CANCER METASTATIC
     Dosage: ()
     Route: 048
     Dates: start: 20170424, end: 20180123

REACTIONS (22)
  - Respiratory disorder [Unknown]
  - Pleural effusion [Unknown]
  - Seizure [Fatal]
  - Facial bones fracture [Unknown]
  - Aggression [Unknown]
  - General physical health deterioration [Unknown]
  - Cerebrovascular accident [Unknown]
  - Headache [Unknown]
  - Cerebral haemorrhage [Fatal]
  - Delirium [Fatal]
  - Subarachnoid haemorrhage [Unknown]
  - Asthenia [Unknown]
  - Aphasia [Unknown]
  - Restlessness [Unknown]
  - Pyrexia [Unknown]
  - Haematoma [Unknown]
  - Speech disorder [Unknown]
  - Metastases to central nervous system [Unknown]
  - Pneumonia [Unknown]
  - Disorientation [Unknown]
  - Pain [Unknown]
  - Fall [Unknown]

NARRATIVE: CASE EVENT DATE: 20180123
